FAERS Safety Report 17275995 (Version 1)
Quarter: 2020Q1

REPORT INFORMATION
  Report Type: Spontaneous
  Country: CA (occurrence: CA)
  Receive Date: 20200116
  Receipt Date: 20200116
  Transmission Date: 20200409
  Serious: Yes (Disabling, Other)
  Sender: FDA-Public Use
  Company Number: CA-TEVA-2020-CA-1168217

PATIENT
  Age: 79 Year
  Sex: Male

DRUGS (1)
  1. TEVA-PRAVASTIN TABLETS [Suspect]
     Active Substance: PRAVASTATIN SODIUM
     Route: 065

REACTIONS (1)
  - Glaucoma [Not Recovered/Not Resolved]
